FAERS Safety Report 24731720 (Version 1)
Quarter: 2024Q4

REPORT INFORMATION
  Report Type: Spontaneous
  Country: US (occurrence: US)
  Receive Date: 20241213
  Receipt Date: 20241213
  Transmission Date: 20250115
  Serious: Yes (Hospitalization, Other)
  Sender: BAXTER
  Company Number: US-BAXTER-2024BAX029121

PATIENT
  Age: 47 Year
  Sex: Male
  Weight: 82.1 kg

DRUGS (11)
  1. CYCLOPHOSPHAMIDE [Suspect]
     Active Substance: CYCLOPHOSPHAMIDE
     Indication: Lymphodepletion
     Dosage: DOSE: 50 MG/KG PER PROTOCOL
     Route: 042
     Dates: start: 20241112, end: 20241113
  2. FLUDARABINE [Suspect]
     Active Substance: FLUDARABINE PHOSPHATE
     Indication: Lymphodepletion
     Dosage: DOSE:25 MG/M2/DAY
     Route: 042
     Dates: start: 20241111, end: 20241115
  3. ALDESLEUKIN [Suspect]
     Active Substance: ALDESLEUKIN
     Indication: Colony stimulating factor therapy
     Dosage: NTERLEUKIN-2 (IL-2) 0.35 ML/IU/M2
     Route: 058
     Dates: start: 20241118, end: 20241118
  4. ACYCLOVIR [Concomitant]
     Active Substance: ACYCLOVIR
     Dosage: ONGOING
     Dates: start: 20241111
  5. FLUCONAZOLE [Concomitant]
     Active Substance: FLUCONAZOLE
     Dosage: DOSE: 200MG DAILY, (STOP DATE:ONGOING)
     Route: 048
     Dates: start: 20241121
  6. LEVOFLOXACIN [Concomitant]
     Active Substance: LEVOFLOXACIN
     Dosage: DOSE: 500MG, DAILY (STOP DATE: )ONGOING
     Route: 048
     Dates: start: 20241121
  7. FILGRASTIM [Concomitant]
     Active Substance: FILGRASTIM
     Dosage: 480 MCG ONCE DAILY, ONGOING
     Dates: start: 20241121
  8. FILGRASTIM [Concomitant]
     Active Substance: FILGRASTIM
     Dosage: 480 MCG ONCE DAILY
     Dates: start: 20241122
  9. FILGRASTIM [Concomitant]
     Active Substance: FILGRASTIM
     Dosage: CONTINUING DAILY
     Dates: start: 20241123
  10. SULFAMETHOXAZOLE AND TRIMETHOPRIM [Concomitant]
     Active Substance: SULFAMETHOXAZOLE\TRIMETHOPRIM
     Dosage: ONGOING
     Dates: start: 20241111
  11. DOXYCYCLINE [Concomitant]
     Active Substance: DOXYCYCLINE
     Dosage: UNK
     Dates: start: 20241111

REACTIONS (5)
  - Neutropenia [Unknown]
  - Febrile neutropenia [Recovered/Resolved]
  - Chills [Recovered/Resolved]
  - Pyrexia [Recovered/Resolved]
  - Fatigue [Recovered/Resolved]

NARRATIVE: CASE EVENT DATE: 20241120
